FAERS Safety Report 15453820 (Version 1)
Quarter: 2018Q4

REPORT INFORMATION
  Report Type: Report from Study
  Country: None (occurrence: US)
  Receive Date: 20181001
  Receipt Date: 20181001
  Transmission Date: 20190204
  Serious: Yes (Other)
  Sender: FDA-Public Use
  Company Number: US-ABBVIE-18K-163-2452774-00

PATIENT
  Age: 41 Year
  Sex: Female

DRUGS (1)
  1. HUMIRA [Suspect]
     Active Substance: ADALIMUMAB
     Indication: RHEUMATOID ARTHRITIS
     Route: 058

REACTIONS (5)
  - Coma [Unknown]
  - Aspiration [Unknown]
  - Pulmonary mycosis [Not Recovered/Not Resolved]
  - Hepatic cirrhosis [Unknown]
  - Emphysema [Unknown]

NARRATIVE: CASE EVENT DATE: 2014
